FAERS Safety Report 5610505-3 (Version None)
Quarter: 2008Q1

REPORT INFORMATION
  Report Type: 
  Country: None (occurrence: None)
  Receive Date: 20080130
  Receipt Date: 20080130
  Transmission Date: 20080703
  Serious: No
  Sender: FDA-Public Use
  Company Number: None

PATIENT

DRUGS (6)
  1. PLAVIX [Suspect]
  2. ATENOLOL [Suspect]
  3. ASPIRIN [Suspect]
  4. CRESTOR [Suspect]
  5. ZOFRAN [Suspect]
  6. MULTI-VITAMIN [Suspect]

REACTIONS (4)
  - ASTHENIA [None]
  - DIPLOPIA [None]
  - NAUSEA [None]
  - VOMITING [None]
